FAERS Safety Report 24341208 (Version 3)
Quarter: 2024Q4

REPORT INFORMATION
  Report Type: Spontaneous
  Country: JP (occurrence: JP)
  Receive Date: 20240919
  Receipt Date: 20241113
  Transmission Date: 20250115
  Serious: Yes (Other)
  Sender: GLAXOSMITHKLINE
  Company Number: JP-GSKJP-JP2024JPN113326AA

PATIENT

DRUGS (8)
  1. DAPRODUSTAT [Interacting]
     Active Substance: DAPRODUSTAT
     Indication: Nephrogenic anaemia
     Dosage: 2 MG
     Route: 048
     Dates: start: 20240903
  2. OLMESARTAN [Interacting]
     Active Substance: OLMESARTAN
     Indication: Hypertension
     Dosage: 10 MG
     Route: 048
  3. INSULIN GLARGINE RECOMBINANT [Interacting]
     Active Substance: INSULIN GLARGINE
     Indication: Type 2 diabetes mellitus
     Dosage: UNK
     Route: 058
  4. ROSUVASTATIN [Interacting]
     Active Substance: ROSUVASTATIN
     Indication: Dyslipidaemia
     Dosage: 2.5 MG
  5. SHAKUYAKUKANZOTO [Interacting]
     Active Substance: HERBALS
     Indication: Muscle spasms
     Dosage: 2.5 G, PRN
     Route: 048
  6. NOVORAPID [Concomitant]
     Active Substance: INSULIN ASPART
     Indication: Diabetes mellitus management
     Dosage: ADJUSTED FROM 4 TO 6 UNITS
  7. NOVORAPID [Concomitant]
     Active Substance: INSULIN ASPART
     Dosage: INCREASED TO 6 UNITS
     Dates: start: 20240912
  8. ESAXERENONE [Concomitant]
     Active Substance: ESAXERENONE
     Indication: Hypertension
     Dosage: 2.5 MG
     Route: 048

REACTIONS (4)
  - Diabetes mellitus inadequate control [Unknown]
  - Hyperglycaemia [Unknown]
  - Hypoglycaemia [Unknown]
  - Drug interaction [Unknown]

NARRATIVE: CASE EVENT DATE: 20240906
